FAERS Safety Report 15518401 (Version 2)
Quarter: 2018Q4

REPORT INFORMATION
  Report Type: Spontaneous
  Country: TW (occurrence: TW)
  Receive Date: 20181017
  Receipt Date: 20181108
  Transmission Date: 20190205
  Serious: Yes (Other)
  Sender: FDA-Public Use
  Company Number: TW-ELI_LILLY_AND_COMPANY-TW201810004279

PATIENT
  Age: 65 Year
  Sex: Female

DRUGS (1)
  1. FORTEO [Suspect]
     Active Substance: TERIPARATIDE
     Indication: OSTEOPOROSIS
     Dosage: 20 UG, DAILY
     Route: 058
     Dates: start: 20180517

REACTIONS (3)
  - Serum procollagen type I N-terminal propeptide increased [Unknown]
  - Arthralgia [Unknown]
  - Inflammatory marker increased [Unknown]

NARRATIVE: CASE EVENT DATE: 201808
